FAERS Safety Report 5863938-4 (Version None)
Quarter: 2008Q3

REPORT INFORMATION
  Report Type: 
  Country: None (occurrence: None)
  Receive Date: 20080829
  Receipt Date: 20080822
  Transmission Date: 20090109
  Serious: Yes (Death)
  Sender: FDA-Public Use
  Company Number: US-JNJFOC-20080606036

PATIENT
  Sex: Female
  Weight: 45.36 kg

DRUGS (13)
  1. DURAGESIC-100 [Suspect]
     Indication: PAIN
     Route: 062
  2. MULTI-VITAMINS [Concomitant]
  3. PREVACID [Concomitant]
     Route: 045
  4. ATIVAN [Concomitant]
  5. REGLAN [Concomitant]
  6. LORATADINE [Concomitant]
  7. TYLENOL W/ CODEINE NO. 3 [Concomitant]
  8. CELEXA [Concomitant]
  9. TUMS [Concomitant]
  10. ACIDOPHYLLUS [Concomitant]
  11. DRAMAMINE [Concomitant]
  12. CEFAZOLIN [Concomitant]
  13. MORPHINE [Concomitant]

REACTIONS (5)
  - ABDOMINAL DISTENSION [None]
  - ACUTE PULMONARY OEDEMA [None]
  - CARDIO-RESPIRATORY ARREST [None]
  - DRUG TOXICITY [None]
  - UNRESPONSIVE TO STIMULI [None]
